FAERS Safety Report 15371204 (Version 1)
Quarter: 2018Q3

REPORT INFORMATION
  Report Type: Spontaneous
  Country: US (occurrence: US)
  Receive Date: 20180911
  Receipt Date: 20180911
  Transmission Date: 20181010
  Serious: No
  Sender: FDA-Public Use
  Company Number: US-BEH-2018094705

PATIENT
  Sex: Male
  Weight: 88.44 kg

DRUGS (9)
  1. EPINEPHRINE. [Concomitant]
     Active Substance: EPINEPHRINE
  2. HAEGARDA [Suspect]
     Active Substance: HUMAN C1-ESTERASE INHIBITOR
     Indication: PROPHYLAXIS
  3. VITAMIN C [Concomitant]
     Active Substance: ASCORBIC ACID
  4. CARVEDILOL. [Concomitant]
     Active Substance: CARVEDILOL
  5. HAEGARDA [Suspect]
     Active Substance: HUMAN C1-ESTERASE INHIBITOR
     Indication: HEREDITARY ANGIOEDEMA
     Dosage: 6000 IU, BIW
     Route: 058
     Dates: start: 20180613
  6. XARELTO [Concomitant]
     Active Substance: RIVAROXABAN
  7. NORVASC [Concomitant]
     Active Substance: AMLODIPINE BESYLATE
  8. SODIUM CHLORIDE. [Concomitant]
     Active Substance: SODIUM CHLORIDE
  9. VITAMINS WITH MINERALS [Concomitant]
     Active Substance: MINERALS\VITAMINS

REACTIONS (2)
  - Dry mouth [Unknown]
  - Injury [Unknown]
